FAERS Safety Report 13687537 (Version 1)
Quarter: 2017Q2

REPORT INFORMATION
  Report Type: Spontaneous
  Country: US (occurrence: US)
  Receive Date: 20170624
  Receipt Date: 20170624
  Transmission Date: 20170830
  Serious: Yes (Other)
  Sender: FDA-Public Use
  Company Number: US-BRISTOL-MYERS SQUIBB COMPANY-BMS-2017-055050

PATIENT
  Age: 90 Year
  Sex: Male
  Weight: 97.51 kg

DRUGS (2)
  1. WARFARIN SODIUM. [Suspect]
     Active Substance: WARFARIN SODIUM
     Indication: ATRIAL FIBRILLATION
     Route: 065
  2. COUMADIN [Suspect]
     Active Substance: WARFARIN SODIUM
     Indication: ATRIAL FIBRILLATION
     Dosage: UNK
     Route: 065

REACTIONS (6)
  - Surgery [Unknown]
  - Epistaxis [Unknown]
  - Contusion [Unknown]
  - Femur fracture [Unknown]
  - High frequency ablation [Unknown]
  - Fall [Unknown]

NARRATIVE: CASE EVENT DATE: 201606
